FAERS Safety Report 20562324 (Version 1)
Quarter: 2022Q1

REPORT INFORMATION
  Report Type: Spontaneous
  Country: US (occurrence: None)
  Receive Date: 20220307
  Receipt Date: 20220307
  Transmission Date: 20220423
  Serious: No
  Sender: FDA-Public Use
  Company Number: None

PATIENT

DRUGS (1)
  1. HYDROMORPHONE HCL [Suspect]
     Active Substance: HYDROMORPHONE HYDROCHLORIDE
     Route: 048

REACTIONS (4)
  - Product dispensing error [None]
  - Product prescribing issue [None]
  - Transcription medication error [None]
  - Inappropriate schedule of product administration [None]
